FAERS Safety Report 21996181 (Version 2)
Quarter: 2023Q1

REPORT INFORMATION
  Report Type: Report from Study
  Country: KR (occurrence: KR)
  Receive Date: 20230215
  Receipt Date: 20230302
  Transmission Date: 20230417
  Serious: Yes (Hospitalization)
  Sender: FDA-Public Use
  Company Number: KR-JNJFOC-20220407082

PATIENT
  Age: 75 Year
  Sex: Female
  Weight: 52.1 kg

DRUGS (82)
  1. TECLISTAMAB [Suspect]
     Active Substance: TECLISTAMAB
     Indication: Plasma cell myeloma
     Dosage: 30 (10MG/ML)?DOSE ALSO REPORTED AS 1.56 ML FROM 16-MAR-2022 TO 18-MAR-2022.
     Route: 058
     Dates: start: 20220316
  2. TECLISTAMAB [Suspect]
     Active Substance: TECLISTAMAB
     Dosage: 30 (10MG/ML)
     Route: 058
     Dates: start: 20220318
  3. TECLISTAMAB [Suspect]
     Active Substance: TECLISTAMAB
     Dosage: 150 (90MG/ML)?DOSE ALSO REPORTED AS 0.867 ML.
     Route: 058
     Dates: start: 20220322, end: 20220322
  4. TECLISTAMAB [Suspect]
     Active Substance: TECLISTAMAB
     Dosage: 150 (90MG/ML)
     Route: 058
     Dates: start: 20220329
  5. DARATUMUMAB [Suspect]
     Active Substance: DARATUMUMAB
     Indication: Plasma cell myeloma
     Dosage: DOSE ALSO REPORTED AS 15 ML FROM 15-MAR-2022 TO 22-MAR-2022.
     Route: 058
     Dates: start: 20220315
  6. DARATUMUMAB [Suspect]
     Active Substance: DARATUMUMAB
     Route: 058
     Dates: start: 20220322
  7. DARATUMUMAB [Suspect]
     Active Substance: DARATUMUMAB
     Route: 058
     Dates: start: 20220329
  8. MAGNESIUM HYDROXIDE [Concomitant]
     Active Substance: MAGNESIUM HYDROXIDE
     Indication: Constipation
     Route: 048
     Dates: start: 20190410
  9. MAGNESIUM HYDROXIDE [Concomitant]
     Active Substance: MAGNESIUM HYDROXIDE
     Route: 048
     Dates: start: 20190410, end: 20220315
  10. MAGNESIUM HYDROXIDE [Concomitant]
     Active Substance: MAGNESIUM HYDROXIDE
     Route: 048
     Dates: start: 20220309, end: 20220315
  11. MAGNESIUM HYDROXIDE [Concomitant]
     Active Substance: MAGNESIUM HYDROXIDE
     Route: 048
     Dates: start: 20220316, end: 20220316
  12. ZOLEDRONIC ACID [Concomitant]
     Active Substance: ZOLEDRONIC ACID
     Indication: Osteoporosis
     Route: 042
     Dates: start: 20210513
  13. TRIMETAZIDINE [Concomitant]
     Active Substance: TRIMETAZIDINE
     Indication: Ischaemic heart disease prophylaxis
     Route: 048
     Dates: start: 20200519
  14. DILTIAZEM [Concomitant]
     Active Substance: DILTIAZEM
     Indication: Ischaemic heart disease prophylaxis
     Route: 048
     Dates: start: 20200519
  15. NICORANDIL [Concomitant]
     Active Substance: NICORANDIL
     Indication: Ischaemic heart disease prophylaxis
     Route: 048
     Dates: start: 20210519
  16. TEGOPRAZAN [Concomitant]
     Active Substance: TEGOPRAZAN
     Indication: Gastrooesophageal reflux disease
     Route: 048
     Dates: start: 20220120, end: 20220325
  17. RIVAROXABAN [Concomitant]
     Active Substance: RIVAROXABAN
     Indication: Thrombosis prophylaxis
     Route: 048
     Dates: start: 20200120
  18. RIVAROXABAN [Concomitant]
     Active Substance: RIVAROXABAN
     Route: 048
     Dates: start: 20220309, end: 20220311
  19. RIVAROXABAN [Concomitant]
     Active Substance: RIVAROXABAN
     Route: 048
     Dates: start: 20220315
  20. IBUPROFEN PLUS CODEINE [Concomitant]
     Indication: Headache
     Route: 048
     Dates: start: 20210312
  21. DIAZEPAM [Concomitant]
     Active Substance: DIAZEPAM
     Indication: Prophylaxis
     Route: 048
     Dates: start: 20210519
  22. DIAZEPAM [Concomitant]
     Active Substance: DIAZEPAM
     Route: 048
     Dates: start: 20210517
  23. AMLODIPINE [Concomitant]
     Active Substance: AMLODIPINE BESYLATE
     Indication: Hypertension
     Route: 048
     Dates: start: 20220217
  24. AUGMENTIN [Concomitant]
     Active Substance: AMOXICILLIN\CLAVULANATE POTASSIUM
     Indication: Prophylaxis
     Route: 048
     Dates: start: 20220305
  25. OXYCODONE [Concomitant]
     Active Substance: OXYCODONE
     Indication: Headache
     Route: 048
     Dates: start: 20220305
  26. OXYCODONE [Concomitant]
     Active Substance: OXYCODONE
     Route: 048
     Dates: start: 20220306, end: 20220317
  27. OXYCODONE [Concomitant]
     Active Substance: OXYCODONE
     Route: 048
     Dates: start: 20220318, end: 20220318
  28. ACETAMINOPHEN [Concomitant]
     Active Substance: ACETAMINOPHEN
     Indication: Cytokine release syndrome
     Route: 048
     Dates: start: 20220320, end: 20220321
  29. AMINO ACIDS\DEXTROSE\ELECTROLYTES NOS\SOYBEAN OIL [Concomitant]
     Active Substance: AMINO ACIDS\DEXTROSE\ELECTROLYTES NOS\SOYBEAN OIL
     Indication: Fatigue
     Route: 042
     Dates: start: 20220307, end: 20220314
  30. AMINO ACIDS\DEXTROSE\ELECTROLYTES NOS\SOYBEAN OIL [Concomitant]
     Active Substance: AMINO ACIDS\DEXTROSE\ELECTROLYTES NOS\SOYBEAN OIL
     Indication: Nutritional supplementation
     Route: 042
     Dates: start: 20220307, end: 20220314
  31. AMINO ACIDS\DEXTROSE\ELECTROLYTES NOS\SOYBEAN OIL [Concomitant]
     Active Substance: AMINO ACIDS\DEXTROSE\ELECTROLYTES NOS\SOYBEAN OIL
     Route: 042
     Dates: start: 20220323, end: 20220325
  32. LACTITOL [Concomitant]
     Active Substance: LACTITOL
     Indication: Constipation
     Route: 048
     Dates: start: 20220310, end: 20220317
  33. LACTITOL [Concomitant]
     Active Substance: LACTITOL
     Route: 048
     Dates: start: 20220310, end: 20220310
  34. LACTITOL [Concomitant]
     Active Substance: LACTITOL
     Route: 048
     Dates: start: 20220310, end: 20220312
  35. LACTITOL [Concomitant]
     Active Substance: LACTITOL
     Route: 048
     Dates: start: 20220316, end: 20220317
  36. LACTITOL [Concomitant]
     Active Substance: LACTITOL
     Route: 048
     Dates: start: 20220310, end: 20220313
  37. LACTITOL [Concomitant]
     Active Substance: LACTITOL
     Route: 048
     Dates: start: 20220317, end: 20220318
  38. CODEINE;IBUPROFEN;PARACETAMOL [Concomitant]
     Indication: Headache
     Route: 048
     Dates: start: 20220313, end: 20220314
  39. CODEINE;IBUPROFEN;PARACETAMOL [Concomitant]
     Route: 048
     Dates: start: 20220315, end: 20220316
  40. CODEINE;IBUPROFEN;PARACETAMOL [Concomitant]
     Route: 048
     Dates: start: 20220305, end: 20220312
  41. CODEINE;IBUPROFEN;PARACETAMOL [Concomitant]
     Route: 048
     Dates: start: 20220307, end: 20220312
  42. CODEINE;IBUPROFEN;PARACETAMOL [Concomitant]
     Route: 048
     Dates: start: 20220317, end: 20220317
  43. CODEINE;IBUPROFEN;PARACETAMOL [Concomitant]
     Route: 048
     Dates: start: 20220318, end: 20220319
  44. CODEINE;IBUPROFEN;PARACETAMOL [Concomitant]
     Route: 048
     Dates: start: 20220320, end: 20220326
  45. SULFAMETHOXAZOLE\TRIMETHOPRIM [Concomitant]
     Active Substance: SULFAMETHOXAZOLE\TRIMETHOPRIM
     Indication: Infection prophylaxis
     Route: 048
     Dates: start: 20220315
  46. ACYCLOVIR [Concomitant]
     Active Substance: ACYCLOVIR
     Indication: Infection prophylaxis
     Route: 048
     Dates: start: 20220315, end: 20220821
  47. LEVOFLOXACIN [Concomitant]
     Active Substance: LEVOFLOXACIN
     Indication: Infection prophylaxis
     Route: 048
     Dates: start: 20220315, end: 20220319
  48. QUETIAPINE [Concomitant]
     Active Substance: QUETIAPINE
     Indication: Insomnia
     Route: 048
     Dates: start: 20220318, end: 20220323
  49. URSODIOL [Concomitant]
     Active Substance: URSODIOL
     Indication: Alanine aminotransferase increased
     Route: 048
     Dates: start: 20220322, end: 20220523
  50. URSODIOL [Concomitant]
     Active Substance: URSODIOL
     Route: 048
     Dates: start: 20220321, end: 20220321
  51. CALCIUM GLUCONATE [Concomitant]
     Active Substance: CALCIUM GLUCONATE
     Indication: Hypocalcaemia
     Route: 042
     Dates: start: 20220321, end: 20220321
  52. CALCIUM GLUCONATE [Concomitant]
     Active Substance: CALCIUM GLUCONATE
     Route: 042
     Dates: start: 20220322, end: 20220322
  53. CALCIUM GLUCONATE [Concomitant]
     Active Substance: CALCIUM GLUCONATE
     Route: 042
     Dates: start: 20220324, end: 20220325
  54. POTASSIUM POLYSTYRENE SULFONATE [Concomitant]
     Indication: Prophylaxis
     Route: 048
     Dates: start: 20220321, end: 20220324
  55. POTASSIUM POLYSTYRENE SULFONATE [Concomitant]
     Route: 048
     Dates: start: 20220316, end: 20220316
  56. POTASSIUM POLYSTYRENE SULFONATE [Concomitant]
     Route: 048
     Dates: start: 20220317, end: 20220317
  57. POTASSIUM POLYSTYRENE SULFONATE [Concomitant]
     Route: 048
     Dates: start: 20220316, end: 20220316
  58. ORNITHINE OXOGLURATE [Concomitant]
     Active Substance: ORNITHINE OXOGLURATE
     Indication: Prophylaxis
     Route: 042
     Dates: start: 20220321, end: 20220325
  59. GABEXATE [Concomitant]
     Active Substance: GABEXATE
     Indication: Prophylaxis
     Route: 042
     Dates: start: 20220322, end: 20220322
  60. GABEXATE [Concomitant]
     Active Substance: GABEXATE
     Indication: Amylase increased
     Route: 042
     Dates: start: 20220322, end: 20220325
  61. GABEXATE [Concomitant]
     Active Substance: GABEXATE
     Indication: Lipase increased
  62. ULINASTATIN [Concomitant]
     Active Substance: ULINASTATIN
     Indication: Prophylaxis
     Route: 042
     Dates: start: 20220322, end: 20220322
  63. ULINASTATIN [Concomitant]
     Active Substance: ULINASTATIN
     Indication: Amylase increased
     Route: 042
     Dates: start: 20220322, end: 20220322
  64. ULINASTATIN [Concomitant]
     Active Substance: ULINASTATIN
     Indication: Lipase increased
  65. HARMONILAN [Concomitant]
     Indication: Fatigue
     Route: 048
     Dates: start: 20220305, end: 20220321
  66. HARMONILAN [Concomitant]
     Indication: Nutritional supplementation
     Route: 048
     Dates: start: 20220325, end: 20220325
  67. HARMONILAN [Concomitant]
     Route: 048
     Dates: start: 20220326, end: 20220422
  68. SULFAMETHOXAZOLE\TRIMETHOPRIM [Concomitant]
     Active Substance: SULFAMETHOXAZOLE\TRIMETHOPRIM
     Indication: Prophylaxis
     Route: 048
     Dates: start: 20161109
  69. DIAZEPAM [Concomitant]
     Active Substance: DIAZEPAM
     Indication: Prophylaxis
     Route: 048
     Dates: start: 20210513
  70. ORNITHINE ASPARTATE [Concomitant]
     Active Substance: ORNITHINE ASPARTATE
     Indication: Aspartate aminotransferase increased
     Route: 045
     Dates: start: 20220321, end: 20220321
  71. ORNITHINE ASPARTATE [Concomitant]
     Active Substance: ORNITHINE ASPARTATE
     Indication: Alanine aminotransferase increased
     Route: 042
     Dates: start: 20220322, end: 20220323
  72. ORNITHINE ASPARTATE [Concomitant]
     Active Substance: ORNITHINE ASPARTATE
     Route: 042
     Dates: start: 20220324, end: 20220325
  73. POTASSIUM CHLORIDE\SODIUM CHLORIDE [Concomitant]
     Active Substance: POTASSIUM CHLORIDE\SODIUM CHLORIDE
     Indication: Hypokalaemia
     Route: 042
     Dates: start: 20220321, end: 20220322
  74. POTASSIUM CHLORIDE\SODIUM CHLORIDE [Concomitant]
     Active Substance: POTASSIUM CHLORIDE\SODIUM CHLORIDE
     Route: 042
     Dates: start: 20220324, end: 20220324
  75. DEXTROSE [Concomitant]
     Active Substance: DEXTROSE
     Indication: Nutritional supplementation
     Route: 042
     Dates: start: 20220322, end: 20220325
  76. DEXTROSE [Concomitant]
     Active Substance: DEXTROSE
     Indication: Blood creatinine increased
     Route: 042
     Dates: start: 20220317, end: 20220317
  77. FUROSEMIDE [Concomitant]
     Active Substance: FUROSEMIDE
     Indication: Fluid retention
     Route: 042
     Dates: start: 20220323, end: 20220323
  78. TAMIPOOL [ASCORBIC ACID;BIOTIN;CYANOCOBALAMIN;DEXPANTHENOL;ERGOCALCIFE [Concomitant]
     Indication: Parenteral nutrition
     Route: 042
     Dates: start: 20220323, end: 20220325
  79. TAZOPERAN [Concomitant]
     Indication: Infection prophylaxis
     Route: 042
     Dates: start: 20220324, end: 20220325
  80. TAZOPERAN [Concomitant]
     Indication: Cytokine release syndrome
     Route: 042
     Dates: start: 20220326, end: 20220326
  81. SODIUM CHLORIDE [Concomitant]
     Active Substance: SODIUM CHLORIDE
     Indication: Therapeutic gargle
     Route: 048
     Dates: start: 20220315, end: 20220317
  82. CALCIUM ACETATE [Concomitant]
     Active Substance: CALCIUM ACETATE
     Indication: Hyperphosphataemia
     Route: 048
     Dates: start: 20220317, end: 20220317

REACTIONS (1)
  - Cytokine release syndrome [Recovered/Resolved]

NARRATIVE: CASE EVENT DATE: 20220324
